FAERS Safety Report 10220402 (Version 1)
Quarter: 2014Q2

REPORT INFORMATION
  Report Type: Spontaneous
  Country: US (occurrence: US)
  Receive Date: 20140606
  Receipt Date: 20140606
  Transmission Date: 20141212
  Serious: No
  Sender: FDA-Public Use
  Company Number: US-BIOGENIDEC-2014BI052384

PATIENT
  Sex: Female

DRUGS (2)
  1. AVONEX [Suspect]
     Indication: MULTIPLE SCLEROSIS
     Route: 030
     Dates: start: 19961001
  2. AVONEX [Suspect]
     Indication: MULTIPLE SCLEROSIS
     Route: 030

REACTIONS (7)
  - Influenza [Unknown]
  - Gastric ulcer [Unknown]
  - Visual impairment [Unknown]
  - Coeliac disease [Unknown]
  - Muscle spasms [Unknown]
  - Pyrexia [Unknown]
  - Hypersensitivity [Unknown]
